FAERS Safety Report 24105446 (Version 1)
Quarter: 2024Q3

REPORT INFORMATION
  Report Type: Spontaneous
  Country: IN (occurrence: IN)
  Receive Date: 20240717
  Receipt Date: 20240717
  Transmission Date: 20241016
  Serious: Yes (Other)
  Sender: SANDOZ
  Company Number: IN-SANDOZ-SDZ2023IN073087

PATIENT
  Age: 27 Year
  Sex: Female

DRUGS (7)
  1. TACROLIMUS [Suspect]
     Active Substance: TACROLIMUS
     Indication: Renal transplant
     Dosage: 1 MG, BID
     Route: 048
  2. Candid [Concomitant]
     Indication: Product used for unknown indication
     Dosage: MOUTH PAINT, 3 ML AFTER FOOD - DAILY - 4 WEEKS
     Route: 065
  3. CILNIDIPINE [Concomitant]
     Active Substance: CILNIDIPINE
     Indication: Product used for unknown indication
     Dosage: 1 DOSE AFTER FOOD - SOS
     Route: 065
  4. FOLVITE [Concomitant]
     Active Substance: FOLIC ACID
     Indication: Product used for unknown indication
     Dosage: 5 MG AFTER BREAKFAST - DAILY
     Route: 065
  5. MYFORTIC [Concomitant]
     Active Substance: MYCOPHENOLATE SODIUM
     Indication: Renal transplant
     Dosage: 360 MG, BID
     Route: 048
  6. SEPTRAN [Concomitant]
     Indication: Product used for unknown indication
     Dosage: AFTER DINNER - DAILY - 4 WEEKS
     Route: 065
  7. PREDNISOLONE [Concomitant]
     Active Substance: PREDNISOLONE
     Indication: Product used for unknown indication
     Dosage: 1 DOSE AFTER BREAKFAST - DAILY
     Route: 065

REACTIONS (6)
  - IgA nephropathy [Unknown]
  - Disease recurrence [Unknown]
  - Chronic allograft nephropathy [Unknown]
  - Blood urea increased [Unknown]
  - Blood potassium increased [Unknown]
  - White blood cell count decreased [Unknown]

NARRATIVE: CASE EVENT DATE: 20240101
